FAERS Safety Report 4820692-2 (Version None)
Quarter: 2005Q4

REPORT INFORMATION
  Report Type: 
  Country: None (occurrence: None)
  Receive Date: 20051104
  Receipt Date: 20051026
  Transmission Date: 20060501
  Serious: Yes (Disabling)
  Sender: FDA-Public Use
  Company Number: JP-GILEAD-2005-0008872

PATIENT
  Sex: Male

DRUGS (8)
  1. VIREAD [Suspect]
     Indication: HIV INFECTION
     Route: 048
     Dates: start: 20020328, end: 20040113
  2. ZIAGEN [Concomitant]
     Indication: HIV INFECTION
     Dates: start: 20050318
  3. ZIAGEN [Concomitant]
     Dates: start: 20020328, end: 20041103
  4. ZIAGEN [Concomitant]
     Dates: start: 20011022, end: 20020311
  5. KALETRA [Concomitant]
     Indication: HIV INFECTION
     Dates: start: 20020328, end: 20040924
  6. KALETRA [Concomitant]
     Dates: start: 20011022, end: 20020311
  7. LOXONIN [Concomitant]
     Indication: HIV INFECTION
     Dates: start: 20020819
  8. DIFLUCAN [Concomitant]
     Dates: start: 20020724

REACTIONS (3)
  - NEPHROPATHY [None]
  - NEPHROTIC SYNDROME [None]
  - PATHOGEN RESISTANCE [None]
